FAERS Safety Report 16902304 (Version 2)
Quarter: 2019Q4

REPORT INFORMATION
  Report Type: Spontaneous
  Country: JP (occurrence: JP)
  Receive Date: 20191010
  Receipt Date: 20191108
  Transmission Date: 20200122
  Serious: No
  Sender: FDA-Public Use
  Company Number: JP-AMGEN-JPNSP2019166464

PATIENT
  Age: 68 Year
  Sex: Female
  Weight: 51 kg

DRUGS (12)
  1. EVENITY [Suspect]
     Active Substance: ROMOSOZUMAB-AQQG
     Dosage: 210 MILLIGRAM, QMO
     Route: 058
     Dates: start: 20190815, end: 20190815
  2. PRALIA [Suspect]
     Active Substance: DENOSUMAB
     Indication: OSTEOPOROSIS
     Dosage: UNK
     Route: 058
     Dates: start: 20181117, end: 201906
  3. RIONA [Concomitant]
     Active Substance: FERRIC CITRATE ANHYDROUS
     Dosage: 750 MILLIGRAM STOP ON 14/DEC/2018, RESUMED ON 24/APR/2019
  4. EVENITY [Suspect]
     Active Substance: ROMOSOZUMAB-AQQG
     Indication: OSTEOPOROSIS
     Dosage: 105 MILLIGRAM, QMO
     Route: 058
     Dates: start: 20190603, end: 20190701
  5. EDIROL [Concomitant]
     Active Substance: ELDECALCITOL
     Dosage: 0.5MG (08/AUGUNK YEAR QD),06/SEPUNK YEAR MON,WED,FRI,SUN,09/NOVUNK YEAR ONTUE,THU,SAT,SUN 4 DAY QWK
  6. VASOLAN [VERAPAMIL HYDROCHLORIDE] [Concomitant]
     Active Substance: VERAPAMIL HYDROCHLORIDE
     Indication: SUPRAVENTRICULAR TACHYCARDIA
     Dosage: UNK UNK, AS NECESSARY
     Dates: start: 20190218
  7. METHYCOBAL [Concomitant]
     Active Substance: METHYLCOBALAMIN
     Dosage: 500 MICROGRAM, QD (THREE TABLETS PER DAY)
  8. FOLIAMIN [Concomitant]
     Active Substance: FOLIC ACID
     Dosage: 5 MILLIGRAM, QD
  9. RABEPRAZOLE SODIUM. [Concomitant]
     Active Substance: RABEPRAZOLE SODIUM
     Dosage: 10 MILLIGRAM, QD
  10. PRALIA [Suspect]
     Active Substance: DENOSUMAB
     Dosage: UNK
     Route: 058
     Dates: start: 2019
  11. WARFARIN [WARFARIN POTASSIUM] [Concomitant]
     Active Substance: WARFARIN POTASSIUM
     Dosage: 1.75 MG, 1.5 MG, 1.5 MG, 1.5MG, 1.75MG, 2 MG, 2 MG ON NHD DAYS AND 1.75 MG ON HD DAY, 2MG AND 1.75MG
  12. P-TOL [SUCROFERRIC OXYHYDROXIDE] [Concomitant]
     Dosage: 250 MILLIGRAM, QD (IN 3 DIVIDED DOSES)
     Dates: start: 20190710

REACTIONS (2)
  - Incorrect dose administered [Unknown]
  - Therapy non-responder [Unknown]

NARRATIVE: CASE EVENT DATE: 20181117
